FAERS Safety Report 10995021 (Version 1)
Quarter: 2015Q2

REPORT INFORMATION
  Report Type: Spontaneous
  Country: DE (occurrence: DE)
  Receive Date: 20150407
  Receipt Date: 20150407
  Transmission Date: 20150821
  Serious: Yes (Other)
  Sender: FDA-Public Use
  Company Number: DE-BAYER-2015-085198

PATIENT
  Age: 1 Day
  Sex: Male
  Weight: .75 kg

DRUGS (1)
  1. ACETYLSALICYLIC ACID({=100 MG) [Suspect]
     Active Substance: ASPIRIN
     Indication: FACTOR V DEFICIENCY
     Dosage: 100 MG/D, UNK
     Route: 064
     Dates: end: 20140910

REACTIONS (3)
  - Intraventricular haemorrhage neonatal [Recovered/Resolved with Sequelae]
  - Premature baby [Recovering/Resolving]
  - Patent ductus arteriosus [Recovered/Resolved]

NARRATIVE: CASE EVENT DATE: 20140910
